FAERS Safety Report 4507735-0 (Version None)
Quarter: 2004Q4

REPORT INFORMATION
  Report Type: 
  Country: None (occurrence: None)
  Receive Date: 20041015
  Receipt Date: 20040615
  Transmission Date: 20050328
  Serious: Yes (Other)
  Sender: FDA-Public Use
  Company Number: 2004029814

PATIENT
  Age: 43 Year
  Sex: Female

DRUGS (3)
  1. NEURONTIN [Suspect]
     Indication: MIGRAINE
     Dosage: 600 MG (DAILY), ORAL
     Route: 048
  2. LEVOTHYROXINE SODIUM [Concomitant]
  3. PANTOPRAZOLE (PANTOPRAZOLE) [Concomitant]

REACTIONS (3)
  - CONVULSION [None]
  - MIGRAINE [None]
  - TRIGEMINAL NEURALGIA [None]
